FAERS Safety Report 14242466 (Version 1)
Quarter: 2017Q4

REPORT INFORMATION
  Report Type: Spontaneous
  Country: US (occurrence: US)
  Receive Date: 20171201
  Receipt Date: 20171201
  Transmission Date: 20180321
  Serious: No
  Sender: FDA-Public Use
  Company Number: US-ACCORD-061389

PATIENT
  Sex: Female

DRUGS (2)
  1. ETOPOSIDE. [Suspect]
     Active Substance: ETOPOSIDE
     Indication: NON-SMALL CELL LUNG CANCER STAGE III
     Dates: start: 201707, end: 201708
  2. CISPLATIN ACCORD [Suspect]
     Active Substance: CISPLATIN
     Indication: NON-SMALL CELL LUNG CANCER STAGE III
     Dates: start: 201707, end: 201708

REACTIONS (5)
  - Off label use [Unknown]
  - Drug ineffective [Unknown]
  - Chest pain [Unknown]
  - Vomiting [Unknown]
  - Cough [Not Recovered/Not Resolved]
